FAERS Safety Report 5742617-8 (Version None)
Quarter: 2008Q2

REPORT INFORMATION
  Report Type: 
  Country: None (occurrence: None)
  Receive Date: 20080515
  Receipt Date: 20080515
  Transmission Date: 20081010
  Serious: Yes (Other)
  Sender: FDA-Public Use
  Company Number: None

PATIENT
  Sex: Female
  Weight: 143.7903 kg

DRUGS (2)
  1. AVANDIA [Suspect]
     Indication: DIABETES MELLITUS
     Dosage: 8 MG   DAILY      PO
     Route: 048
     Dates: start: 20010101
  2. AVANDIA [Suspect]
     Indication: DIABETES MELLITUS
     Dosage: 8 MG   DAILY      PO
     Route: 048
     Dates: start: 20080101

REACTIONS (5)
  - CARDIAC FAILURE CONGESTIVE [None]
  - CONDITION AGGRAVATED [None]
  - IMPAIRED HEALING [None]
  - OEDEMA PERIPHERAL [None]
  - SKIN ULCER [None]
